FAERS Safety Report 6065719-8 (Version None)
Quarter: 2009Q1

REPORT INFORMATION
  Report Type: 
  Country: None (occurrence: None)
  Receive Date: 20090202
  Receipt Date: 20090116
  Transmission Date: 20090719
  Serious: Yes (Death, Life-Threatening, Hospitalization)
  Sender: FDA-Public Use
  Company Number: F03200800127

PATIENT
  Age: 72 Year
  Sex: Female

DRUGS (15)
  1. OXALIPLATIN - SOLUTION - [Suspect]
     Indication: PANCREATIC CARCINOMA
     Dosage: 85 MG/M2 EVERY 2 WEEKS - INTRAVENOUS NOS
     Route: 042
     Dates: start: 20081030, end: 20081030
  2. CETUXIMAB - SOLUTION [Suspect]
     Indication: PANCREATIC CARCINOMA
     Dosage: 250 MG/M2 1/WEEK - INTRAVENOUS NOS
     Route: 042
     Dates: start: 20081105, end: 20081105
  3. GEMZAR [Suspect]
     Indication: PANCREATIC CARCINOMA
     Dosage: 800 MG/M2 EVERY TWO WEEKS - INTRAVENOUS NOS
     Route: 042
     Dates: start: 20081030, end: 20081030
  4. ACETAMINOPHEN AND OXYCODONE HCL [Concomitant]
  5. DIPHENOXYLATE HCL + ATROPINE SULFATE [Concomitant]
  6. LOPERAMIDE HCL [Concomitant]
  7. MORPHINE SULFATE [Concomitant]
  8. POTASSIUM CHLORIDE [Concomitant]
  9. VALSARTAN [Concomitant]
  10. ROSUVASTATIN CALCIUM [Concomitant]
  11. AMLODIPINE [Concomitant]
  12. ONDANSETRON HYDROCHLORIDE [Concomitant]
  13. TRAMADOL HCL [Concomitant]
  14. SERTRALINE [Concomitant]
  15. OMEPRAZOLE [Concomitant]

REACTIONS (11)
  - ACUTE RESPIRATORY DISTRESS SYNDROME [None]
  - ANAEMIA [None]
  - BLOOD GLUCOSE INCREASED [None]
  - FALL [None]
  - GENERAL PHYSICAL HEALTH DETERIORATION [None]
  - MALNUTRITION [None]
  - METABOLIC ACIDOSIS [None]
  - PLEURAL EFFUSION [None]
  - PULMONARY OEDEMA [None]
  - RESPIRATORY FAILURE [None]
  - UPPER LIMB FRACTURE [None]
